FAERS Safety Report 14517826 (Version 1)
Quarter: 2018Q1

REPORT INFORMATION
  Report Type: Report from Study
  Country: None (occurrence: CA)
  Receive Date: 20180212
  Receipt Date: 20180212
  Transmission Date: 20180509
  Serious: Yes (Other)
  Sender: FDA-Public Use
  Company Number: CA-ABBVIE-18K-028-2250511-00

PATIENT
  Age: 48 Year
  Sex: Female

DRUGS (1)
  1. HUMIRA [Suspect]
     Active Substance: ADALIMUMAB
     Indication: COLITIS ULCERATIVE
     Route: 058
     Dates: start: 20170208

REACTIONS (7)
  - Joint stiffness [Recovered/Resolved]
  - Injection site pruritus [Unknown]
  - Cerebral disorder [Not Recovered/Not Resolved]
  - Trismus [Recovered/Resolved]
  - Injection site reaction [Not Recovered/Not Resolved]
  - Pain in jaw [Recovered/Resolved]
  - Injection site swelling [Unknown]

NARRATIVE: CASE EVENT DATE: 201709
